FAERS Safety Report 8155117-5 (Version None)
Quarter: 2012Q1

REPORT INFORMATION
  Report Type: 
  Country: None (occurrence: None)
  Receive Date: 20120221
  Receipt Date: 20120210
  Transmission Date: 20120608
  Serious: Yes (Other)
  Sender: FDA-Public Use
  Company Number: GB-ROCHE-1039402

PATIENT
  Sex: Female
  Weight: 108 kg

DRUGS (3)
  1. METHOTREXATE [Concomitant]
  2. STEROIDS NOS [Concomitant]
  3. MABTHERA [Suspect]
     Indication: RHEUMATOID ARTHRITIS
     Dates: start: 20100929

REACTIONS (2)
  - SKIN IRRITATION [None]
  - EYE IRRITATION [None]
